FAERS Safety Report 17180592 (Version 1)
Quarter: 2019Q4

REPORT INFORMATION
  Report Type: Spontaneous
  Country: SE (occurrence: SE)
  Receive Date: 20191219
  Receipt Date: 20191219
  Transmission Date: 20200122
  Serious: Yes (Hospitalization)
  Sender: FDA-Public Use
  Company Number: SE-PFIZER INC-2019542750

PATIENT
  Age: 23 Year
  Sex: Female

DRUGS (4)
  1. IMOVANE [Suspect]
     Active Substance: ZOPICLONE
     Dosage: 40 MG (8 PIECES OF 5 MG), UNK
     Dates: start: 20180423, end: 20180423
  2. VENLAFAXINE HCL [Suspect]
     Active Substance: VENLAFAXINE HYDROCHLORIDE
     Dosage: 150 MG, UNK
     Dates: start: 20180423, end: 20180423
  3. PROPAVAN [Suspect]
     Active Substance: PROPIOMAZINE
     Dosage: 375 MG (15 PIECES OF 25 MG), UNK
     Route: 048
     Dates: start: 20180423, end: 20180423
  4. LERGIGAN [PROMETHAZINE HYDROCHLORIDE] [Suspect]
     Active Substance: PROMETHAZINE HYDROCHLORIDE
     Dosage: 125 MG (5 PIECES OF 25 MG), UNK
     Dates: start: 20180423, end: 20180423

REACTIONS (4)
  - Intentional self-injury [Unknown]
  - Akathisia [Unknown]
  - Tachycardia [Unknown]
  - Fatigue [Unknown]

NARRATIVE: CASE EVENT DATE: 20180423
